FAERS Safety Report 9711159 (Version 1)
Quarter: 2013Q4

REPORT INFORMATION
  Report Type: Spontaneous
  Country: US (occurrence: US)
  Receive Date: 20131126
  Receipt Date: 20131126
  Transmission Date: 20140711
  Serious: No
  Sender: FDA-Public Use
  Company Number: US-BRISTOL-MYERS SQUIBB COMPANY-19178722

PATIENT
  Age: 54 Year
  Sex: Female
  Weight: 99.77 kg

DRUGS (2)
  1. BYETTA [Suspect]
     Indication: TYPE 2 DIABETES MELLITUS
     Dosage: DOSE:  5MCG FOR A MONTH THEN 10MCG
     Dates: end: 2011
  2. METFORMIN [Suspect]
     Route: 048

REACTIONS (4)
  - Eructation [Recovered/Resolved]
  - Gastric dilatation [Recovered/Resolved]
  - Blood glucose decreased [Recovered/Resolved]
  - Weight decreased [Recovered/Resolved]
